FAERS Safety Report 16908021 (Version 1)
Quarter: 2019Q4

REPORT INFORMATION
  Report Type: Spontaneous
  Country: US (occurrence: US)
  Receive Date: 20191011
  Receipt Date: 20191011
  Transmission Date: 20200122
  Serious: Yes (Hospitalization)
  Sender: FDA-Public Use
  Company Number: US-HIKMA PHARMACEUTICALS USA INC.-US-H14001-19-05198

PATIENT
  Age: 57 Year
  Sex: Male
  Weight: 79.82 kg

DRUGS (7)
  1. METHADONE [Suspect]
     Active Substance: METHADONE HYDROCHLORIDE
     Indication: PRODUCT USED FOR UNKNOWN INDICATION
     Route: 048
     Dates: start: 20170615, end: 20170624
  2. MORPHINE [Suspect]
     Active Substance: MORPHINE
     Indication: PRODUCT USED FOR UNKNOWN INDICATION
     Route: 048
     Dates: end: 20170624
  3. MORPHINE [Suspect]
     Active Substance: MORPHINE
     Indication: PRODUCT USED FOR UNKNOWN INDICATION
     Route: 042
     Dates: start: 20170615, end: 20170617
  4. DURVALUMAB. [Suspect]
     Active Substance: DURVALUMAB
     Indication: TRANSITIONAL CELL CARCINOMA
     Route: 042
     Dates: start: 20170526, end: 20170526
  5. DURVALUMAB. [Suspect]
     Active Substance: DURVALUMAB
     Route: 042
     Dates: start: 20170619, end: 20170627
  6. EPACADOSTAT [Suspect]
     Active Substance: EPACADOSTAT
     Route: 048
     Dates: start: 20170619, end: 20170627
  7. EPACADOSTAT [Suspect]
     Active Substance: EPACADOSTAT
     Indication: TRANSITIONAL CELL CARCINOMA
     Route: 048
     Dates: start: 20170526, end: 20170606

REACTIONS (3)
  - Tumour pain [Recovered/Resolved with Sequelae]
  - Urinary tract infection [Recovered/Resolved with Sequelae]
  - Delirium [Recovered/Resolved]

NARRATIVE: CASE EVENT DATE: 20170624
